FAERS Safety Report 8027669-7 (Version None)
Quarter: 2011Q4

REPORT INFORMATION
  Report Type: 
  Country: None (occurrence: None)
  Receive Date: 20111130
  Receipt Date: 20110428
  Transmission Date: 20120403
  Serious: Yes (Hospitalization, Other)
  Sender: FDA-Public Use
  Company Number: US201005000628

PATIENT
  Age: 60 Year
  Sex: Male
  Weight: 102 kg

DRUGS (8)
  1. METFORMIN HCL [Concomitant]
  2. BINOCETIN (CHLORAMPHENICOL) [Concomitant]
  3. FUROSEMIDE [Concomitant]
  4. JANUVIA (SITAGLIPITIN PHOSPHATE [Concomitant]
  5. EXENATIDE UNK STRENGTH PEN, DISPOSABLE DEVICE (EXENATIDE PEN (UNKNOWN [Concomitant]
  6. ACTOS [Concomitant]
  7. SIMVASTATIN [Concomitant]
  8. BYETTA [Suspect]
     Indication: DIABETES MELLITUS

REACTIONS (3)
  - RENAL FAILURE CHRONIC [None]
  - PANCREATITIS [None]
  - RENAL FAILURE ACUTE [None]
